FAERS Safety Report 15894487 (Version 2)
Quarter: 2021Q2

REPORT INFORMATION
  Report Type: Other
  Country: DE (occurrence: DE)
  Receive Date: 20190131
  Receipt Date: 20210406
  Transmission Date: 20210716
  Serious: Yes (Life-Threatening, Hospitalization, Other)
  Sender: FDA-Public Use
  Company Number: DE-LUPIN PHARMACEUTICALS INC.-2019-00503

PATIENT
  Age: 15 Year
  Sex: Female
  Weight: 56 kg

DRUGS (1)
  1. QUETIAPINE TABLETS [Suspect]
     Active Substance: QUETIAPINE
     Indication: SUICIDE ATTEMPT
     Dosage: 50 MG, UNK (EVERY 9 TOTAL)
     Route: 048
     Dates: start: 20190107, end: 20190107

REACTIONS (4)
  - Suicidal ideation [Not Recovered/Not Resolved]
  - Somnolence [Recovering/Resolving]
  - Dysarthria [Recovering/Resolving]
  - Intentional overdose [Unknown]

NARRATIVE: CASE EVENT DATE: 20190107
